FAERS Safety Report 23750852 (Version 2)
Quarter: 2024Q2

REPORT INFORMATION
  Report Type: Spontaneous
  Country: US (occurrence: US)
  Receive Date: 20240417
  Receipt Date: 20240423
  Transmission Date: 20240716
  Serious: No
  Sender: FDA-Public Use
  Company Number: US-AMGEN-USASP2024074755

PATIENT
  Age: 76 Year
  Sex: Male
  Weight: 108.84 kg

DRUGS (1)
  1. REPATHA [Suspect]
     Active Substance: EVOLOCUMAB
     Indication: Blood cholesterol increased
     Dosage: 420 MILLIGRAM, QMO/3.5 ML
     Route: 058

REACTIONS (4)
  - Hypoacusis [Unknown]
  - Drug dose omission by device [Unknown]
  - Device difficult to use [Unknown]
  - Lack of injection site rotation [Unknown]

NARRATIVE: CASE EVENT DATE: 20240405
